FAERS Safety Report 25411507 (Version 5)
Quarter: 2025Q3

REPORT INFORMATION
  Report Type: Report from Study
  Country: US (occurrence: US)
  Receive Date: 20250609
  Receipt Date: 20250930
  Transmission Date: 20251021
  Serious: Yes (Hospitalization)
  Sender: TAKEDA
  Company Number: US-TAKEDA-2025TUS052201

PATIENT
  Sex: Female
  Weight: 118 kg

DRUGS (35)
  1. LANADELUMAB [Suspect]
     Active Substance: LANADELUMAB
     Indication: Immune system disorder
     Dosage: 300 MILLIGRAM, Q4WEEKS
  2. LANADELUMAB [Suspect]
     Active Substance: LANADELUMAB
  3. LANADELUMAB [Suspect]
     Active Substance: LANADELUMAB
  4. METOCLOPRAMIDE HYDROCHLORIDE [Concomitant]
     Active Substance: METOCLOPRAMIDE HYDROCHLORIDE
  5. SUDOGEST [Concomitant]
     Active Substance: PSEUDOEPHEDRINE HYDROCHLORIDE
  6. KETOCONAZOLE [Concomitant]
     Active Substance: KETOCONAZOLE
  7. FISH OIL [Concomitant]
     Active Substance: FISH OIL
  8. ZINC [Concomitant]
     Active Substance: ZINC
  9. HYDROXYZINE HYDROCHLORIDE [Concomitant]
     Active Substance: HYDROXYZINE HYDROCHLORIDE
  10. KETOTIFEN FUMARATE [Concomitant]
     Active Substance: KETOTIFEN FUMARATE
  11. VOLTAREN ARTHRITIS PAIN [Concomitant]
     Active Substance: DICLOFENAC SODIUM
  12. CROMOLYN SODIUM [Concomitant]
     Active Substance: CROMOLYN SODIUM
  13. ALBUTEROL SULFATE [Concomitant]
     Active Substance: ALBUTEROL SULFATE
  14. BUPRENORPHINE HYDROCHLORIDE [Concomitant]
     Active Substance: BUPRENORPHINE HYDROCHLORIDE
  15. FAMOTIDINE [Concomitant]
     Active Substance: FAMOTIDINE
  16. RIZATRIPTAN [Concomitant]
     Active Substance: RIZATRIPTAN
  17. PROCHLORPERAZINE MALEATE [Concomitant]
     Active Substance: PROCHLORPERAZINE MALEATE
  18. PROMETHAZINE HYDROCHLORIDE [Concomitant]
     Active Substance: PROMETHAZINE HYDROCHLORIDE
  19. CLOBETASOL [Concomitant]
     Active Substance: CLOBETASOL
  20. TUMS [Concomitant]
     Active Substance: CALCIUM CARBONATE
  21. ONDANSETRON HYDROCHLORIDE [Concomitant]
     Active Substance: ONDANSETRON HYDROCHLORIDE
  22. ACETAMINOPHEN [Concomitant]
     Active Substance: ACETAMINOPHEN
  23. AZITHROMYCIN [Concomitant]
     Active Substance: AZITHROMYCIN
  24. TRIAMCINOLONE ACETONIDE [Concomitant]
     Active Substance: TRIAMCINOLONE ACETONIDE
  25. ESTRADIOL [Concomitant]
     Active Substance: ESTRADIOL
  26. BOTOX [Concomitant]
     Active Substance: ONABOTULINUMTOXINA
  27. EPINEPHRINE [Concomitant]
     Active Substance: EPINEPHRINE
  28. ORLADEYO [Concomitant]
     Active Substance: BEROTRALSTAT HYDROCHLORIDE
  29. XOPENEX [Concomitant]
     Active Substance: LEVALBUTEROL HYDROCHLORIDE
  30. PROCTO-MED HC [Concomitant]
     Active Substance: HYDROCORTISONE
  31. REGLAN [Concomitant]
     Active Substance: METOCLOPRAMIDE HYDROCHLORIDE
  32. FIRAZYR [Concomitant]
     Active Substance: ICATIBANT ACETATE
  33. CLOBETASOL PROPIONATE [Concomitant]
     Active Substance: CLOBETASOL PROPIONATE
  34. PROCHLORPERAZINE [Concomitant]
     Active Substance: PROCHLORPERAZINE
  35. ALBUTEROL\IPRATROPIUM [Concomitant]
     Active Substance: ALBUTEROL\IPRATROPIUM

REACTIONS (9)
  - Urticaria [Unknown]
  - Allergy to plants [Unknown]
  - Injection site urticaria [Unknown]
  - Ingrowing nail [Unknown]
  - Pruritus [Recovered/Resolved]
  - Nausea [Unknown]
  - Diarrhoea [Unknown]
  - Rash [Unknown]
  - Hereditary angioedema [Unknown]
